FAERS Safety Report 25493582 (Version 3)
Quarter: 2025Q3

REPORT INFORMATION
  Report Type: Spontaneous
  Country: BR (occurrence: BR)
  Receive Date: 20250630
  Receipt Date: 20250709
  Transmission Date: 20251021
  Serious: Yes (Hospitalization, Other)
  Sender: BOEHRINGER INGELHEIM
  Company Number: BR-Komodo Health-a23aa000008OihdAAC

PATIENT
  Age: 51 Year
  Sex: Male
  Weight: 84 kg

DRUGS (6)
  1. SPIRIVA RESPIMAT [Suspect]
     Active Substance: TIOTROPIUM BROMIDE
     Indication: Emphysema
     Dosage: HE NORMALLY USES ONLY TWO PUFFS PER DAY
     Dates: start: 2023, end: 20250623
  2. SPIRIVA RESPIMAT [Suspect]
     Active Substance: TIOTROPIUM BROMIDE
     Indication: Influenza
     Dosage: HE HAS ALREADY USED FOUR PUFFS IN A DAY, TWO IN A MORNING AND TWO IN A NIGHT.
     Dates: start: 2023
  3. ALBUTEROL [Concomitant]
     Active Substance: ALBUTEROL
     Indication: Asthma
  4. ASPIRIN [Concomitant]
     Active Substance: ASPIRIN
     Indication: Drug therapy
     Dosage: ONE TABLET AT LUNCHTIME.
  5. CLOPIDOGREL [Concomitant]
     Active Substance: CLOPIDOGREL BISULFATE
     Indication: Drug therapy
     Dosage: ONE TABLET AT LUNCHTIME.
  6. Atorvastatina c?lcica [Concomitant]
     Indication: Prophylaxis
     Dosage: ONE TABLET ONCE A DAY IN THE EVENING PERIOD

REACTIONS (4)
  - Myocardial infarction [Recovered/Resolved]
  - Extra dose administered [Recovered/Resolved]
  - Intentional product use issue [Recovered/Resolved]
  - Influenza [Recovered/Resolved]

NARRATIVE: CASE EVENT DATE: 20230101
